FAERS Safety Report 9572748 (Version 1)
Quarter: 2013Q3

REPORT INFORMATION
  Report Type: Spontaneous
  Country: IN (occurrence: None)
  Receive Date: 20130927
  Receipt Date: 20130927
  Transmission Date: 20140515
  Serious: Yes (Hospitalization)
  Sender: FDA-Public Use
  Company Number: SYM-2013-10981

PATIENT
  Age: 52 Year
  Sex: Male

DRUGS (1)
  1. FLUOROURACIL [Suspect]
     Indication: ADENOCARCINOMA OF COLON

REACTIONS (3)
  - Supraventricular tachycardia [None]
  - Hyperhidrosis [None]
  - Palpitations [None]
